FAERS Safety Report 24439480 (Version 2)
Quarter: 2024Q4

REPORT INFORMATION
  Report Type: Report from Study
  Country: US (occurrence: US)
  Receive Date: 20241015
  Receipt Date: 20241026
  Transmission Date: 20250115
  Serious: No
  Sender: MERCK
  Company Number: US-009507513-2410USA003709

PATIENT
  Sex: Female
  Weight: 72.109 kg

DRUGS (22)
  1. SOTATERCEPT [Suspect]
     Active Substance: SOTATERCEPT
     Indication: Pulmonary arterial hypertension
     Dosage: UNK
  2. TYVASO [Suspect]
     Active Substance: TREPROSTINIL
     Indication: Pulmonary arterial hypertension
     Dosage: 72 MICROGRAM (12 BREATHS), QID
     Dates: start: 20190501
  3. VITAMIN C [Concomitant]
     Active Substance: ASCORBIC ACID
     Dosage: UNK
  4. ADVAIR HFA [Concomitant]
     Active Substance: FLUTICASONE PROPIONATE\SALMETEROL XINAFOATE
     Dosage: UNK
  5. CLOBETASOL [Concomitant]
     Active Substance: CLOBETASOL
     Dosage: UNK
  6. ALBUTEROL SULFATE [Concomitant]
     Active Substance: ALBUTEROL SULFATE
     Dosage: UNK
  7. BUMETANIDE [Concomitant]
     Active Substance: BUMETANIDE
     Dosage: UNK
  8. ELIQUIS [Concomitant]
     Active Substance: APIXABAN
     Dosage: UNK
  9. SERTRALINE HYDROCHLORIDE [Concomitant]
     Active Substance: SERTRALINE HYDROCHLORIDE
     Dosage: UNK
  10. KLOR-CON M20 [Concomitant]
     Active Substance: POTASSIUM CHLORIDE
     Dosage: UNK
  11. SIMVASTATIN [Concomitant]
     Active Substance: SIMVASTATIN
     Dosage: UNK
  12. LETAIRIS [Concomitant]
     Active Substance: AMBRISENTAN
     Dosage: UNK
  13. LEVOTHYROXINE SODIUM [Concomitant]
     Active Substance: LEVOTHYROXINE SODIUM
     Dosage: UNK
  14. DIGOXIN [Concomitant]
     Active Substance: DIGOXIN
     Dosage: UNK
  15. CALCIUM [Concomitant]
     Active Substance: CALCIUM
     Dosage: UNK
  16. OXYGEN [Concomitant]
     Active Substance: OXYGEN
     Dosage: UNK
  17. IRON [Concomitant]
     Active Substance: IRON
     Dosage: UNK
  18. SPIRONOLACTONE [Concomitant]
     Active Substance: SPIRONOLACTONE
     Dosage: UNK
  19. FLOVENT HFA [Concomitant]
     Active Substance: FLUTICASONE PROPIONATE
     Dosage: UNK
  20. VITAMIN D3 [Concomitant]
     Active Substance: CHOLECALCIFEROL
     Dosage: UNK
  21. AMLODIPINE BESYLATE [Concomitant]
     Active Substance: AMLODIPINE BESYLATE
     Dosage: UNK
  22. VIAGRA [Concomitant]
     Active Substance: SILDENAFIL CITRATE
     Dosage: UNK

REACTIONS (5)
  - Dizziness [Unknown]
  - Extra dose administered [Unknown]
  - Needle issue [Unknown]
  - Underdose [Unknown]
  - Wrong technique in device usage process [Unknown]

NARRATIVE: CASE EVENT DATE: 20240101
